FAERS Safety Report 10137833 (Version 2)
Quarter: 2014Q2

REPORT INFORMATION
  Report Type: Spontaneous
  Country: US (occurrence: US)
  Receive Date: 20140429
  Receipt Date: 20140429
  Transmission Date: 20141212
  Serious: Yes (Other)
  Sender: FDA-Public Use
  Company Number: US-MYLANLABS-2013S1020083

PATIENT
  Age: 71 Year
  Sex: Female
  Weight: 57.15 kg

DRUGS (10)
  1. NITROFURANTOIN MONOHYDRATE/MACROCRYSTALS CAPSULES [Suspect]
     Indication: FUNGAL INFECTION
     Route: 048
     Dates: start: 20130820, end: 20130827
  2. NITROFURANTOIN MONOHYDRATE/MACROCRYSTALS CAPSULES [Suspect]
     Indication: URINARY TRACT INFECTION
     Route: 048
     Dates: start: 20130820, end: 20130827
  3. PREMARIN [Concomitant]
     Route: 048
  4. BENICAR HCT [Concomitant]
     Route: 048
  5. TENORMIN [Concomitant]
     Route: 048
  6. MONTELUKAST [Concomitant]
     Route: 048
  7. LEVOTHYROXINE [Concomitant]
     Route: 048
  8. VITAMIN E [Concomitant]
  9. CALCIUM [Concomitant]
  10. OCUVITE /01053801/ [Concomitant]

REACTIONS (2)
  - Chest pain [Recovered/Resolved]
  - Myalgia [Recovered/Resolved]
